FAERS Safety Report 11055596 (Version 1)
Quarter: 2015Q2

REPORT INFORMATION
  Report Type: Spontaneous
  Country: US (occurrence: None)
  Receive Date: 20150421
  Receipt Date: 20150421
  Transmission Date: 20150821
  Serious: No
  Sender: FDA-Public Use
  Company Number: None

PATIENT
  Age: 70 Year
  Sex: Female

DRUGS (1)
  1. IBRANCE [Suspect]
     Active Substance: PALBOCICLIB
     Indication: BREAST CANCER
     Dosage: 125MG, QD, PO
     Route: 048
     Dates: start: 20150325

REACTIONS (6)
  - Fatigue [None]
  - Neuropathy peripheral [None]
  - Diarrhoea [None]
  - Arthralgia [None]
  - Decreased appetite [None]
  - Myalgia [None]

NARRATIVE: CASE EVENT DATE: 20150325
